FAERS Safety Report 5276880-7 (Version None)
Quarter: 2007Q1

REPORT INFORMATION
  Report Type: 
  Country: None (occurrence: None)
  Receive Date: 20070327
  Receipt Date: 20070320
  Transmission Date: 20070707
  Serious: Yes (Death)
  Sender: FDA-Public Use
  Company Number: FR-AVENTIS-200710926FR

PATIENT
  Age: 69 Year
  Sex: Male

DRUGS (8)
  1. LASILIX                            /00032601/ [Suspect]
     Route: 048
     Dates: start: 20061215, end: 20070222
  2. CORDARONE [Suspect]
     Route: 048
     Dates: start: 20070201, end: 20070222
  3. MODOPAR [Suspect]
     Route: 048
  4. SINEMET [Suspect]
     Route: 048
  5. KETOPROFEN [Suspect]
     Route: 048
     Dates: start: 20070210, end: 20070222
  6. ATACAND [Suspect]
     Route: 048
     Dates: start: 20061215, end: 20070222
  7. STALEVO 100 [Concomitant]
  8. REQUIP [Concomitant]

REACTIONS (5)
  - ANAEMIA [None]
  - MELAENA [None]
  - NEUTROPENIA [None]
  - PANCYTOPENIA [None]
  - THROMBOCYTOPENIC PURPURA [None]
